FAERS Safety Report 4308333-4 (Version None)
Quarter: 2004Q1

REPORT INFORMATION
  Report Type: 
  Country: None (occurrence: None)
  Receive Date: 20040226
  Receipt Date: 20040206
  Transmission Date: 20041129
  Serious: Yes (Hospitalization, Other)
  Sender: FDA-Public Use
  Company Number: 20031878204US

PATIENT
  Age: 81 Year
  Sex: Female
  Weight: 61.2 kg

DRUGS (4)
  1. CELEBREX [Suspect]
     Indication: OSTEOARTHRITIS
     Dosage: 200 MG, BID, ORAL
     Route: 048
     Dates: start: 20020101
  2. ALL OTHER THERAPEUTIC PRODUCTS [Concomitant]
  3. NORVASC [Concomitant]
  4. ACCUPRIL [Concomitant]

REACTIONS (4)
  - BACK PAIN [None]
  - DIZZINESS [None]
  - FALL [None]
  - LOSS OF CONSCIOUSNESS [None]
